FAERS Safety Report 25463313 (Version 1)
Quarter: 2025Q2

REPORT INFORMATION
  Report Type: Spontaneous
  Country: US (occurrence: US)
  Receive Date: 20250620
  Receipt Date: 20250620
  Transmission Date: 20250716
  Serious: No
  Sender: TEVA
  Company Number: US-TEVA-VS-3343513

PATIENT
  Sex: Male

DRUGS (6)
  1. ADIPEX-P [Suspect]
     Active Substance: PHENTERMINE HYDROCHLORIDE
     Indication: Weight decreased
     Route: 065
  2. ADIPEX-P [Suspect]
     Active Substance: PHENTERMINE HYDROCHLORIDE
     Indication: Weight decreased
     Route: 065
     Dates: start: 202412
  3. PHENTERMINE [Suspect]
     Active Substance: PHENTERMINE
     Indication: Weight decreased
     Route: 065
     Dates: start: 202412
  4. PHENTERMINE [Suspect]
     Active Substance: PHENTERMINE
     Indication: Weight decreased
     Route: 065
  5. TENUATE [Concomitant]
     Active Substance: DIETHYLPROPION HYDROCHLORIDE
     Indication: Weight decreased
  6. FASTIN [Concomitant]
     Active Substance: PHENTERMINE HYDROCHLORIDE
     Indication: Weight decreased

REACTIONS (6)
  - Weight increased [Unknown]
  - Decreased appetite [Unknown]
  - Dry mouth [Unknown]
  - Drug effect less than expected [Unknown]
  - Heart rate increased [Unknown]
  - Product formulation issue [Unknown]

NARRATIVE: CASE EVENT DATE: 20241201
